FAERS Safety Report 9894211 (Version 2)
Quarter: 2014Q1

REPORT INFORMATION
  Report Type: Spontaneous
  Country: BR (occurrence: BR)
  Receive Date: 20140213
  Receipt Date: 20140219
  Transmission Date: 20141002
  Serious: Yes (Hospitalization, Other)
  Sender: FDA-Public Use
  Company Number: BR-BIOMARINAP-BR-2014-102503

PATIENT
  Age: 9 Year
  Sex: Female

DRUGS (4)
  1. ALDURAZYME [Suspect]
     Indication: MUCOPOLYSACCHARIDOSIS I
     Dosage: UNK
     Dates: start: 20040908, end: 200901
  2. ALDURAZYME [Suspect]
     Dosage: 1.16 MG/KG, QOW
     Route: 041
     Dates: start: 200901
  3. CAPTOPRIL [Concomitant]
     Indication: PRODUCT USED FOR UNKNOWN INDICATION
     Dosage: UNK
     Dates: start: 200403
  4. FUROSEMIDE [Concomitant]
     Indication: PRODUCT USED FOR UNKNOWN INDICATION
     Dosage: UNK
     Dates: start: 200403

REACTIONS (2)
  - Intracranial pressure increased [Recovered/Resolved]
  - Shunt infection [Recovered/Resolved]
